FAERS Safety Report 5524488-8 (Version None)
Quarter: 2007Q4

REPORT INFORMATION
  Report Type: 
  Country: None (occurrence: None)
  Receive Date: 20071122
  Receipt Date: 20071115
  Transmission Date: 20080405
  Serious: Yes (Hospitalization, Other)
  Sender: FDA-Public Use
  Company Number: PHEH2007US13864

PATIENT
  Age: 18 Year
  Sex: Female
  Weight: 57 kg

DRUGS (11)
  1. TEGRETOL [Suspect]
     Indication: EPILEPSY
  2. TOPIRAMATE [Suspect]
  3. DEPAKOTE [Suspect]
  4. TEGRETOL [Suspect]
     Dates: start: 19920101, end: 19990101
  5. TEGRETOL [Suspect]
     Dates: start: 19990101
  6. KEPPRA [Suspect]
     Dosage: 750 MG, BID
     Dates: end: 20060601
  7. KEPPRA [Suspect]
     Dosage: 750 MG, BID
  8. FELBAMATE [Suspect]
     Dates: end: 20060608
  9. AUGMENTIN [Suspect]
     Dates: start: 20060501
  10. HALDOL [Suspect]
     Indication: AGITATION
     Dates: start: 20060608
  11. ATIVAN [Suspect]
     Indication: AGITATION
     Dates: start: 20060608

REACTIONS (34)
  - ABNORMAL BEHAVIOUR [None]
  - ADRENAL INSUFFICIENCY [None]
  - AGITATION [None]
  - AGRANULOCYTOSIS [None]
  - C-REACTIVE PROTEIN INCREASED [None]
  - CARDIAC FAILURE CONGESTIVE [None]
  - COGNITIVE DISORDER [None]
  - CONVULSION [None]
  - COORDINATION ABNORMAL [None]
  - DIARRHOEA [None]
  - EAR PAIN [None]
  - ENCEPHALOPATHY [None]
  - EYE ROLLING [None]
  - FATIGUE [None]
  - HYPOTENSION [None]
  - IRRITABILITY [None]
  - LIVER FUNCTION TEST ABNORMAL [None]
  - LUNG INJURY [None]
  - MULTIPLE SYSTEM ATROPHY [None]
  - MUSCULOSKELETAL STIFFNESS [None]
  - MYOCLONUS [None]
  - PANCYTOPENIA [None]
  - PHARYNGEAL ERYTHEMA [None]
  - PLEURAL EFFUSION [None]
  - PNEUMOTHORAX [None]
  - PRURITUS [None]
  - PULMONARY ARTERY DILATATION [None]
  - PYREXIA [None]
  - RASH [None]
  - SEPSIS [None]
  - SOMNOLENCE [None]
  - SPLENOMEGALY [None]
  - STREPTOCOCCAL BACTERAEMIA [None]
  - TACHYCARDIA [None]
